FAERS Safety Report 15625337 (Version 1)
Quarter: 2018Q4

REPORT INFORMATION
  Report Type: Spontaneous
  Country: CA (occurrence: US)
  Receive Date: 20181112
  Receipt Date: 20181112
  Transmission Date: 20190205
  Serious: Yes (Death, Hospitalization)
  Sender: FDA-Public Use
  Company Number: None

PATIENT
  Age: 67 Year
  Sex: Male
  Weight: 69.7 kg

DRUGS (1)
  1. MEMANTINE HYDROCHLORIDE. [Suspect]
     Active Substance: MEMANTINE HYDROCHLORIDE
     Dates: end: 20180905

REACTIONS (9)
  - Leptomeningeal myelomatosis [None]
  - Asthenia [None]
  - Delirium [None]
  - Dysarthria [None]
  - Fall [None]
  - Urinary tract infection [None]
  - Dysphagia [None]
  - Balance disorder [None]
  - General physical health deterioration [None]

NARRATIVE: CASE EVENT DATE: 20180924
